FAERS Safety Report 8973521 (Version 1)
Quarter: 2012Q4

REPORT INFORMATION
  Report Type: 
  Country: US (occurrence: US)
  Receive Date: 20121218
  Receipt Date: 20121218
  Transmission Date: 20130627
  Serious: No
  Sender: FDA-Public Use
  Company Number: US-BRISTOL-MYERS SQUIBB COMPANY-16389793

PATIENT

DRUGS (1)
  1. ABILIFY [Suspect]
     Dosage: Initially given 30mg one per day,then increased to 3 times a day

REACTIONS (1)
  - Overdose [Unknown]
